FAERS Safety Report 17777493 (Version 6)
Quarter: 2021Q1

REPORT INFORMATION
  Report Type: Report from Study
  Country: US (occurrence: US)
  Receive Date: 20200513
  Receipt Date: 20210219
  Transmission Date: 20210419
  Serious: Yes (Death, Other)
  Sender: FDA-Public Use
  Company Number: US-ACADIA PHARMACEUTICALS INC.-ACA-2019-014780

PATIENT
  Age: 86 Year
  Sex: Male

DRUGS (1)
  1. NUPLAZID [Suspect]
     Active Substance: PIMAVANSERIN TARTRATE
     Indication: PARKINSON^S DISEASE PSYCHOSIS
     Dosage: 34 MG, QD
     Route: 048
     Dates: start: 20190314

REACTIONS (7)
  - Patient elopement [Unknown]
  - Helicobacter infection [Not Recovered/Not Resolved]
  - Coronavirus infection [Unknown]
  - Death [Fatal]
  - Pain in extremity [Not Recovered/Not Resolved]
  - Dementia Alzheimer^s type [Unknown]
  - Confusional state [Unknown]

NARRATIVE: CASE EVENT DATE: 20210125
